FAERS Safety Report 17537566 (Version 1)
Quarter: 2020Q1

REPORT INFORMATION
  Report Type: Spontaneous
  Country: US (occurrence: US)
  Receive Date: 20200313
  Receipt Date: 20200313
  Transmission Date: 20200409
  Serious: No
  Sender: FDA-Public Use
  Company Number: US-TEVA-2020-US-1193189

PATIENT
  Sex: Male

DRUGS (1)
  1. AUSTEDO [Suspect]
     Active Substance: DEUTETRABENAZINE
     Indication: MOVEMENT DISORDER
     Dosage: 12 MILLIGRAM DAILY;
     Route: 048

REACTIONS (2)
  - Product use in unapproved indication [Unknown]
  - Fatigue [Unknown]
